FAERS Safety Report 21893038 (Version 1)
Quarter: 2023Q1

REPORT INFORMATION
  Report Type: Spontaneous
  Country: NL (occurrence: NL)
  Receive Date: 20230120
  Receipt Date: 20230120
  Transmission Date: 20230418
  Serious: Yes (Life-Threatening, Other)
  Sender: FDA-Public Use
  Company Number: None

PATIENT
  Age: 50 Year
  Sex: Female
  Weight: 75 kg

DRUGS (4)
  1. SULFAMETHOXAZOLE\TRIMETHOPRIM [Suspect]
     Active Substance: SULFAMETHOXAZOLE\TRIMETHOPRIM
     Indication: Cystitis
     Dosage: 2 DOSAGE FORMS DAILY; 2 X PER DAY 1 PIECE 10 DAYS ,COTRIMOXAZOL 120 TABLET  20/100MG / BRAND NAME NO
     Dates: start: 20221028
  2. SULFAMETHOXAZOLE\TRIMETHOPRIM [Suspect]
     Active Substance: SULFAMETHOXAZOLE\TRIMETHOPRIM
     Indication: Inflammation
  3. INFLUENZA VIRUS VACCINE [Suspect]
     Active Substance: INFLUENZA VIRUS VACCINE
     Indication: Influenza immunisation
     Dosage: INFLUENZA VACCINE (NOT SPECIFIED) / FLU VACCINE GP VOCATIONS CAMPAIGN .
     Dates: start: 20221111
  4. MODERNA COVID-19 VACCINE [Suspect]
     Active Substance: ELASOMERAN
     Indication: COVID-19 immunisation
     Dosage: COVID-19 VACCINE MODERNA ORIG/OMIC BA1 INJVLST / COVID-19 VACCINE MODERNA ORIG/OMICRON BA1 INJ 0.5ML
     Dates: start: 20221026

REACTIONS (6)
  - Immune thrombocytopenia [Recovered/Resolved]
  - Lymphadenopathy [Recovered/Resolved]
  - Hypoaesthesia [Unknown]
  - Abdominal pain lower [Recovered/Resolved]
  - Paraesthesia [Unknown]
  - Urinary incontinence [Recovered/Resolved]

NARRATIVE: CASE EVENT DATE: 20221027
